FAERS Safety Report 6553728-1 (Version None)
Quarter: 2010Q1

REPORT INFORMATION
  Report Type: 
  Country: None (occurrence: None)
  Receive Date: 20100125
  Receipt Date: 20100125
  Transmission Date: 20100710
  Serious: No
  Sender: FDA-Public Use
  Company Number: None

PATIENT
  Sex: Female
  Weight: 63.6 kg

DRUGS (1)
  1. FLUCONAZOLE [Suspect]
     Indication: FUNGAL INFECTION
     Dosage: 150 MG. TABLET ONCE, AND AGAIN AFTER THREE DAYS TAKEN BY MOUTH WITH WATER
     Dates: start: 20100112

REACTIONS (4)
  - EYE PRURITUS [None]
  - NASAL DISCOMFORT [None]
  - PRURITUS [None]
  - SWELLING FACE [None]
